FAERS Safety Report 19929660 (Version 1)
Quarter: 2021Q4

REPORT INFORMATION
  Report Type: Spontaneous
  Country: US (occurrence: US)
  Receive Date: 20211007
  Receipt Date: 20211007
  Transmission Date: 20220303
  Serious: No
  Sender: FDA-Public Use
  Company Number: US-BIODELIVERY SCIENCES INTERNATIONAL-2021BDSI0430

PATIENT
  Age: 60 Year
  Sex: Female
  Weight: 48.12 kg

DRUGS (6)
  1. BUPRENORPHINE [Suspect]
     Active Substance: BUPRENORPHINE
     Indication: Pain
     Route: 002
     Dates: start: 202012
  2. TRAMADOL [Concomitant]
     Active Substance: TRAMADOL
     Indication: Pain
     Route: 048
     Dates: start: 201903
  3. PREGABALIN [Concomitant]
     Active Substance: PREGABALIN
     Indication: Pain
     Route: 048
  4. BACLOFEN [Concomitant]
     Active Substance: BACLOFEN
     Indication: Muscle spasms
     Route: 048
  5. CAFFEINE/BUTALBITAL/PARACETAMOL [Concomitant]
     Indication: Headache
     Dosage: 50 MG/ 325MG/ 40 MG
     Route: 048
  6. UNSPECIFIED INGREDIENT [Concomitant]
     Active Substance: UNSPECIFIED INGREDIENT
     Indication: Myoclonus
     Dosage: UNKNOWN; UNKNOWN
     Route: 065

REACTIONS (2)
  - Therapeutic response decreased [Unknown]
  - Fall [Unknown]

NARRATIVE: CASE EVENT DATE: 20201201
